FAERS Safety Report 5646935-3 (Version None)
Quarter: 2008Q1

REPORT INFORMATION
  Report Type: 
  Country: None (occurrence: None)
  Receive Date: 20080229
  Receipt Date: 20080229
  Transmission Date: 20080703
  Serious: No
  Sender: FDA-Public Use
  Company Number: None

PATIENT
  Weight: 70.3075 kg

DRUGS (1)
  1. WELCHOL [Suspect]
     Indication: BLOOD CHOLESTEROL
     Dosage: 4 - 625MG DAILY
     Dates: start: 20070917, end: 20071031

REACTIONS (3)
  - GAIT DISTURBANCE [None]
  - MYOSITIS [None]
  - PAIN [None]
